FAERS Safety Report 6056471-0 (Version None)
Quarter: 2009Q1

REPORT INFORMATION
  Report Type: 
  Country: None (occurrence: None)
  Receive Date: 20090126
  Receipt Date: 20090108
  Transmission Date: 20090719
  Serious: Yes (Life-Threatening)
  Sender: FDA-Public Use
  Company Number: 142895

PATIENT
  Age: 82 Year
  Sex: Female
  Weight: 63 kg

DRUGS (5)
  1. GENTAMICIN [Suspect]
     Indication: BACTERAEMIA
     Dosage: 300 MG, INTRAVENOUS
     Route: 042
     Dates: start: 20081228, end: 20081228
  2. ASPIRIN [Concomitant]
  3. METOCLOPRAMIDE [Concomitant]
  4. ACETAMINOPHEN [Concomitant]
  5. TRIMETHOPRIM [Concomitant]

REACTIONS (6)
  - ANAPHYLACTIC REACTION [None]
  - ATRIAL FIBRILLATION [None]
  - BLOOD PRESSURE INCREASED [None]
  - OXYGEN SATURATION DECREASED [None]
  - RESPIRATORY RATE INCREASED [None]
  - TREMOR [None]
